FAERS Safety Report 22237256 (Version 3)
Quarter: 2025Q3

REPORT INFORMATION
  Report Type: Spontaneous
  Country: EU (occurrence: EU)
  Receive Date: 20230421
  Receipt Date: 20250731
  Transmission Date: 20251021
  Serious: Yes (Hospitalization, Other)
  Sender: AUROBINDO
  Company Number: EU-HALEON-BECH2022GSK049225

PATIENT
  Age: 70 Year
  Sex: Female

DRUGS (11)
  1. FLUCLOXACILLIN [Suspect]
     Active Substance: FLUCLOXACILLIN
     Indication: Postoperative wound infection
     Route: 042
  2. ACETAMINOPHEN [Suspect]
     Active Substance: ACETAMINOPHEN
     Indication: Back pain
     Dosage: 3 GRAM, ONCE A DAY,MAXIMUM 3 G PER DAY
     Route: 048
  3. AMILORIDE [Concomitant]
     Active Substance: AMILORIDE
     Indication: Postoperative wound infection
     Route: 065
  4. ALPRAZOLAM [Concomitant]
     Active Substance: ALPRAZOLAM
     Indication: Postoperative wound infection
     Route: 065
  5. Befact [Concomitant]
     Indication: Product used for unknown indication
     Route: 065
  6. BISOPROLOL [Concomitant]
     Active Substance: BISOPROLOL
     Indication: Postoperative wound infection
     Route: 065
  7. FUROSEMIDE [Concomitant]
     Active Substance: FUROSEMIDE
     Indication: Postoperative wound infection
     Route: 065
  8. GELATIN [Concomitant]
     Active Substance: GELATIN
     Indication: Antidiarrhoeal supportive care
  9. GELATIN [Concomitant]
     Active Substance: GELATIN
     Indication: Diarrhoea
  10. PANTOPRAZOLE [Concomitant]
     Active Substance: PANTOPRAZOLE
     Indication: Postoperative wound infection
     Route: 065
  11. POTASSIUM GLUCONATE [Concomitant]
     Active Substance: POTASSIUM GLUCONATE
     Indication: Postoperative wound infection
     Route: 065

REACTIONS (9)
  - Metabolic acidosis [Recovered/Resolved]
  - Hydroxyprolinuria [Recovered/Resolved]
  - Pyroglutamic acidosis [Unknown]
  - Acute kidney injury [Recovered/Resolved]
  - Diarrhoea [Unknown]
  - Dyspnoea exertional [Unknown]
  - Illness [Unknown]
  - Respiratory disorder [Unknown]
  - Tachypnoea [Unknown]
